FAERS Safety Report 7622728-2 (Version None)
Quarter: 2011Q3

REPORT INFORMATION
  Report Type: 
  Country: None (occurrence: None)
  Receive Date: 20110712
  Receipt Date: 20110627
  Transmission Date: 20111222
  Serious: Yes (Hospitalization)
  Sender: FDA-Public Use
  Company Number: 2011MA008116

PATIENT
  Age: 36 Year
  Sex: Female

DRUGS (5)
  1. VENLAFAXINE HYDROCHLORIDE [Suspect]
     Indication: DEPRESSION
  2. LITHIUM CARBONATE [Suspect]
     Indication: BIPOLAR DISORDER
  3. LINEZOLID [Suspect]
     Indication: EMPYEMA
  4. VANCOMYCIN [Suspect]
     Indication: EMPYEMA
  5. IMIPRAMINE [Suspect]
     Indication: HEADACHE

REACTIONS (11)
  - BLOOD PRESSURE INCREASED [None]
  - SEROTONIN SYNDROME [None]
  - TREMOR [None]
  - CONVULSION [None]
  - UNRESPONSIVE TO STIMULI [None]
  - HYPERTENSION [None]
  - STAPHYLOCOCCAL INFECTION [None]
  - PUPILLARY REFLEX IMPAIRED [None]
  - ANXIETY [None]
  - FAECAL INCONTINENCE [None]
  - MYDRIASIS [None]
